FAERS Safety Report 9247028 (Version 2)
Quarter: 2013Q2

REPORT INFORMATION
  Report Type: Spontaneous
  Country: GB (occurrence: GB)
  Receive Date: 20130423
  Receipt Date: 20130508
  Transmission Date: 20140414
  Serious: Yes (Hospitalization, Other)
  Sender: FDA-Public Use
  Company Number: GB-RANBAXY-2013RR-67844

PATIENT
  Age: 64 Year
  Sex: Female

DRUGS (1)
  1. LISINOPRIL [Suspect]
     Indication: ESSENTIAL HYPERTENSION
     Dosage: UNK
     Route: 065

REACTIONS (3)
  - Tongue oedema [Recovered/Resolved]
  - Dysphagia [Recovering/Resolving]
  - Dysphonia [Recovering/Resolving]
